FAERS Safety Report 11424458 (Version 1)
Quarter: 2015Q3

REPORT INFORMATION
  Report Type: Spontaneous
  Country: US (occurrence: US)
  Receive Date: 20150827
  Receipt Date: 20150827
  Transmission Date: 20151125
  Serious: No
  Sender: FDA-Public Use
  Company Number: US-SA-2015SA012664

PATIENT
  Age: 74 Year
  Sex: Female

DRUGS (19)
  1. MULTAQ [Interacting]
     Active Substance: DRONEDARONE
     Indication: HEART RATE IRREGULAR
     Route: 065
     Dates: start: 201412
  2. COENZYME Q10 [Concomitant]
     Active Substance: UBIDECARENONE
  3. VITAMIN B6 [Concomitant]
     Active Substance: PYRIDOXINE HYDROCHLORIDE
  4. MAGNESIUM [Concomitant]
     Active Substance: MAGNESIUM
  5. CRESTOR [Interacting]
     Active Substance: ROSUVASTATIN CALCIUM
     Route: 065
  6. VITAMIN D [Concomitant]
     Active Substance: CHOLECALCIFEROL
  7. SYNTHROID [Concomitant]
     Active Substance: LEVOTHYROXINE SODIUM
  8. CLONAZEPAM. [Concomitant]
     Active Substance: CLONAZEPAM
  9. MULTAQ [Suspect]
     Active Substance: DRONEDARONE
     Indication: ATRIAL FIBRILLATION
     Route: 065
     Dates: start: 201412
  10. MULTAQ [Interacting]
     Active Substance: DRONEDARONE
     Indication: HEART RATE IRREGULAR
     Route: 065
     Dates: start: 201412
  11. SYNTHROID [Concomitant]
     Active Substance: LEVOTHYROXINE SODIUM
  12. PROPANOLOL [Concomitant]
     Active Substance: PROPRANOLOL HYDROCHLORIDE
  13. MULTAQ [Interacting]
     Active Substance: DRONEDARONE
     Indication: ATRIAL FIBRILLATION
     Route: 065
     Dates: start: 201412
  14. LISINOPRIL. [Concomitant]
     Active Substance: LISINOPRIL
  15. FISH OIL [Concomitant]
     Active Substance: FISH OIL
  16. VITAMIN C [Concomitant]
     Active Substance: ASCORBIC ACID
  17. GARLIC. [Concomitant]
     Active Substance: GARLIC
  18. ASA [Concomitant]
     Active Substance: ASPIRIN
  19. PLAVIX [Concomitant]
     Active Substance: CLOPIDOGREL BISULFATE

REACTIONS (16)
  - Blood glucose decreased [Unknown]
  - Tremor [Unknown]
  - Nervousness [Unknown]
  - Anxiety [Unknown]
  - Dyspnoea [Unknown]
  - Rash [Unknown]
  - Condition aggravated [Unknown]
  - Drug interaction [Unknown]
  - Feeling abnormal [Unknown]
  - Heart rate irregular [Unknown]
  - Chest discomfort [Unknown]
  - Diarrhoea [Unknown]
  - Visual impairment [Unknown]
  - Fatigue [Unknown]
  - Hypotension [Unknown]
  - Hypothyroidism [Unknown]
